FAERS Safety Report 7025424-8 (Version None)
Quarter: 2010Q4

REPORT INFORMATION
  Report Type: 
  Country: None (occurrence: None)
  Receive Date: 20101001
  Receipt Date: 20100924
  Transmission Date: 20110411
  Serious: Yes (Hospitalization)
  Sender: FDA-Public Use
  Company Number: GXKR2010US10859

PATIENT
  Age: 76 Year
  Sex: Female

DRUGS (4)
  1. PACLITAXEL [Suspect]
     Indication: BREAST CANCER STAGE I
     Dosage: UNK
     Route: 065
  2. TRASTUZUMAB [Concomitant]
     Indication: BREAST CANCER STAGE I
     Dosage: UNK
     Route: 065
  3. ATORVASTATIN [Concomitant]
     Dosage: UNK
     Route: 065
  4. MULTI-VITAMINS [Concomitant]
     Route: 065

REACTIONS (3)
  - FACTOR VIII DEFICIENCY [None]
  - FACTOR VIII INHIBITION [None]
  - HAEMATURIA [None]
